FAERS Safety Report 5083459-9 (Version None)
Quarter: 2006Q3

REPORT INFORMATION
  Report Type: 
  Country: None (occurrence: None)
  Receive Date: 20060818
  Receipt Date: 20060420
  Transmission Date: 20061208
  Serious: Yes (Hospitalization, Disabling, Other)
  Sender: FDA-Public Use
  Company Number: PHHO2006AR06414

PATIENT
  Age: 31 Year
  Sex: Female
  Weight: 55.7 kg

DRUGS (6)
  1. CERTICAN [Suspect]
     Indication: RENAL TRANSPLANT
     Dosage: 0.75 MG, BID
     Route: 048
     Dates: start: 20060412, end: 20060420
  2. DELTISONA B [Concomitant]
     Indication: RENAL TRANSPLANT
     Dosage: 20 MG, QD
     Route: 048
     Dates: start: 20060413
  3. DELTISONA B [Concomitant]
     Dosage: 50MG DAILY DOSE
     Route: 048
     Dates: start: 20060423, end: 20060507
  4. BACTRIM [Concomitant]
     Dosage: UNK, UNK
     Route: 048
     Dates: start: 20060413
  5. NEORAL [Suspect]
     Indication: RENAL TRANSPLANT
     Dosage: 110 MG, BID
     Route: 048
     Dates: start: 20060412, end: 20060421
  6. MYCOPHENOLATE MOFETIL [Concomitant]
     Indication: RENAL TRANSPLANT
     Dosage: 1G DAILY
     Route: 048
     Dates: start: 20060427, end: 20060504

REACTIONS (8)
  - ANORECTAL DISORDER [None]
  - BLADDER TAMPONADE [None]
  - BLOOD LACTATE DEHYDROGENASE INCREASED [None]
  - EXTRINSIC ILIAC VEIN COMPRESSION [None]
  - HAEMOLYTIC ANAEMIA [None]
  - MYALGIA [None]
  - NEPHRECTOMY [None]
  - RENAL HAEMATOMA [None]
